FAERS Safety Report 7999345-8 (Version None)
Quarter: 2011Q4

REPORT INFORMATION
  Report Type: 
  Country: None (occurrence: None)
  Receive Date: 20111221
  Receipt Date: 20111212
  Transmission Date: 20120403
  Serious: Yes (Hospitalization)
  Sender: FDA-Public Use
  Company Number: CA-MEDIMMUNE-MEDI-0014189

PATIENT
  Sex: Male
  Weight: 12.4 kg

DRUGS (3)
  1. GLYCOPYRROLATE INJECTION, USP [Concomitant]
  2. TOPIRAMATE [Concomitant]
  3. SYNAGIS [Suspect]
     Route: 030
     Dates: start: 20111103, end: 20111125

REACTIONS (1)
  - PNEUMONIA [None]
